FAERS Safety Report 6007739-5 (Version None)
Quarter: 2008Q4

REPORT INFORMATION
  Report Type: 
  Country: None (occurrence: None)
  Receive Date: 20081217
  Receipt Date: 20080527
  Transmission Date: 20090506
  Serious: No
  Sender: FDA-Public Use
  Company Number: US-ASTRAZENECA-2008UW10687

PATIENT
  Age: 57 Year
  Sex: Female
  Weight: 76.7 kg

DRUGS (6)
  1. CRESTOR [Suspect]
     Route: 048
  2. SYNTHROID [Concomitant]
  3. CLONIDINE [Concomitant]
  4. COZAAR [Concomitant]
  5. AMLODIPINE [Concomitant]
  6. ASCOR [Concomitant]

REACTIONS (1)
  - PAIN IN EXTREMITY [None]
